FAERS Safety Report 11799701 (Version 13)
Quarter: 2018Q1

REPORT INFORMATION
  Report Type: Spontaneous
  Country: US (occurrence: US)
  Receive Date: 20151203
  Receipt Date: 20180117
  Transmission Date: 20180508
  Serious: Yes (Death, Hospitalization)
  Sender: FDA-Public Use
  Company Number: US-ACTELION-A-US2015-128191

PATIENT
  Age: 50 Year
  Sex: Female
  Weight: 43.99 kg

DRUGS (3)
  1. VELETRI [Suspect]
     Active Substance: EPOPROSTENOL
     Indication: PULMONARY ARTERIAL HYPERTENSION
     Dosage: 26 NG/KG, PER MIN
     Route: 042
  2. SILDENAFIL CITRATE. [Concomitant]
     Active Substance: SILDENAFIL CITRATE
  3. VELETRI [Suspect]
     Active Substance: EPOPROSTENOL
     Dosage: 24 NG/KG, PER MIN
     Route: 042
     Dates: start: 20151013

REACTIONS (12)
  - Nasopharyngitis [Unknown]
  - Dizziness [Unknown]
  - Decreased appetite [Unknown]
  - Oxygen saturation decreased [Unknown]
  - Anxiety [Unknown]
  - Jaw disorder [Unknown]
  - Dyspnoea exertional [Unknown]
  - Pneumonia [Unknown]
  - Respiratory distress [Unknown]
  - Dyspnoea [Unknown]
  - Death [Fatal]
  - Neoplasm malignant [Unknown]

NARRATIVE: CASE EVENT DATE: 20160116
